FAERS Safety Report 4375272-2 (Version None)
Quarter: 2004Q2

REPORT INFORMATION
  Report Type: 
  Country: None (occurrence: None)
  Receive Date: 20040609
  Receipt Date: 20040607
  Transmission Date: 20050107
  Serious: Yes (Death, Hospitalization)
  Sender: FDA-Public Use
  Company Number: 04-05-0703

PATIENT
  Age: 59 Year
  Sex: Female

DRUGS (6)
  1. CLOZAPINE [Suspect]
     Dosage: 700MG QD ORAL
     Route: 048
     Dates: start: 19990901, end: 20040401
  2. MULTI-VITAMINS [Concomitant]
  3. FERROUS SULFATE TAB [Concomitant]
  4. CALCIUM [Concomitant]
  5. TRICOR [Concomitant]
  6. BENTYL FOR SPASTIC COLON [Concomitant]

REACTIONS (1)
  - CEREBROVASCULAR ACCIDENT [None]
